FAERS Safety Report 5171212-7 (Version None)
Quarter: 2006Q4

REPORT INFORMATION
  Report Type: 
  Country: None (occurrence: None)
  Receive Date: 20061213
  Receipt Date: 20060118
  Transmission Date: 20070319
  Serious: Yes (Hospitalization)
  Sender: FDA-Public Use
  Company Number: US-AMGEN-STX165306

PATIENT
  Sex: Female

DRUGS (6)
  1. ENBREL [Suspect]
     Indication: PSORIASIS
     Route: 058
     Dates: start: 20041109, end: 20051201
  2. NEURONTIN [Concomitant]
  3. CONCERTA [Concomitant]
  4. METFORMIN [Concomitant]
  5. EFFEXOR [Concomitant]
  6. ZOCOR [Concomitant]

REACTIONS (1)
  - DEEP VEIN THROMBOSIS [None]
